FAERS Safety Report 15422226 (Version 1)
Quarter: 2018Q3

REPORT INFORMATION
  Report Type: Report from Study
  Country: JP (occurrence: JP)
  Receive Date: 20180924
  Receipt Date: 20180924
  Transmission Date: 20181010
  Serious: Yes (Other)
  Sender: FDA-Public Use
  Company Number: JP-BEH-2018095013

PATIENT
  Age: 82 Year
  Sex: Male
  Weight: 58.3 kg

DRUGS (25)
  1. BERIPLEX P/N [Suspect]
     Active Substance: COAGULATION FACTOR IX HUMAN\COAGULATION FACTOR VII HUMAN\COAGULATION FACTOR X HUMAN\PROTEIN C\PROTEIN S HUMAN\PROTHROMBIN
     Indication: SURGERY
     Dosage: UNK
     Route: 042
     Dates: start: 20180712, end: 20180712
  2. BERIPLEX P/N [Suspect]
     Active Substance: COAGULATION FACTOR IX HUMAN\COAGULATION FACTOR VII HUMAN\COAGULATION FACTOR X HUMAN\PROTEIN C\PROTEIN S HUMAN\PROTHROMBIN
     Dosage: 1500 IU, TOT
     Route: 042
     Dates: start: 20180712, end: 20180712
  3. CHICHINA [Concomitant]
     Indication: SURGERY
     Dosage: UNK
     Route: 065
     Dates: start: 20180710, end: 20180712
  4. MARCAIN                            /00330102/ [Concomitant]
     Indication: SURGERY
     Dosage: UNK
     Route: 065
     Dates: start: 20180713, end: 20180713
  5. LEVOFLOXACIN                       /01278903/ [Concomitant]
     Active Substance: LEVOFLOXACIN
     Dosage: UNK
     Route: 048
     Dates: start: 20180709, end: 20180715
  6. FUROSEMIDE. [Concomitant]
     Active Substance: FUROSEMIDE
     Dosage: UNK
     Route: 065
     Dates: start: 20180712, end: 20180723
  7. DIGILANOGEN C                      /00382501/ [Concomitant]
     Dosage: UNK
     Route: 065
     Dates: start: 20180713, end: 20180713
  8. LIDOCAINE                          /00033402/ [Concomitant]
     Active Substance: LIDOCAINE
     Indication: SURGERY
     Dosage: UNK
     Route: 065
     Dates: start: 20180713, end: 20180713
  9. TOSPARYL [Concomitant]
     Indication: PROCEDURAL PAIN
     Dosage: UNK
     Route: 065
     Dates: start: 20180714, end: 20180714
  10. KAYTWO N [Concomitant]
     Active Substance: MENATETRENONE
     Indication: VITAMIN K
     Dosage: 4 ML, TOT
     Route: 065
     Dates: start: 20180712, end: 20180712
  11. WARFARIN K [Concomitant]
     Active Substance: WARFARIN POTASSIUM
     Indication: CEREBRAL INFARCTION
     Dosage: 1.75 MG, QD
     Route: 048
     Dates: start: 20110831, end: 20180710
  12. MAGNESIUM OXIDE. [Concomitant]
     Active Substance: MAGNESIUM OXIDE
     Route: 048
  13. SENNARIDE [Concomitant]
     Active Substance: SENNOSIDES A AND B
     Route: 048
  14. MAGMITT [Concomitant]
     Active Substance: MAGNESIUM OXIDE
     Route: 048
  15. SODIUM SALICYLATE [Concomitant]
     Active Substance: SODIUM SALICYLATE
     Indication: SURGERY
     Dosage: UNK
     Route: 065
     Dates: start: 20180710, end: 20180912
  16. TRANEXAMIC ACID. [Concomitant]
     Active Substance: TRANEXAMIC ACID
     Indication: SURGERY
     Dosage: UNK
     Route: 065
     Dates: start: 20180710, end: 20180712
  17. BISACODYL. [Concomitant]
     Active Substance: BISACODYL
     Dosage: UNK
     Route: 054
     Dates: start: 20180716, end: 20180716
  18. INDOMETACIN [Concomitant]
     Active Substance: INDOMETHACIN
     Dosage: UNK
     Route: 054
     Dates: start: 20180717, end: 20180717
  19. NIFEDIPINE. [Concomitant]
     Active Substance: NIFEDIPINE
     Route: 048
  20. MEROPENEM                          /01250502/ [Suspect]
     Active Substance: MEROPENEM
     Indication: PRODUCT USED FOR UNKNOWN INDICATION
     Dosage: 0.5 G, UNK
     Route: 042
     Dates: start: 20180710, end: 20180719
  21. ATARAX?P                           /00058402/ [Concomitant]
     Active Substance: HYDROXYZINE HYDROCHLORIDE
     Indication: SURGERY
     Dosage: UNK
     Route: 065
     Dates: start: 20180712, end: 20180712
  22. BERIPLEX P/N [Suspect]
     Active Substance: COAGULATION FACTOR IX HUMAN\COAGULATION FACTOR VII HUMAN\COAGULATION FACTOR X HUMAN\PROTEIN C\PROTEIN S HUMAN\PROTHROMBIN
     Dosage: UNK
     Route: 042
     Dates: start: 20180712, end: 20180712
  23. WARFARIN K [Concomitant]
     Active Substance: WARFARIN POTASSIUM
     Dosage: 1.75 MG, QD
     Route: 048
     Dates: start: 20180719
  24. PANTHENYL [Concomitant]
     Dosage: UNK
     Route: 065
     Dates: start: 20180712, end: 20180713
  25. DOPAMINE                           /00360702/ [Concomitant]
     Indication: SURGERY
     Dosage: UNK
     Route: 065
     Dates: start: 20180712, end: 20180712

REACTIONS (2)
  - Inflammation [Recovering/Resolving]
  - Hepatic function abnormal [Recovered/Resolved]

NARRATIVE: CASE EVENT DATE: 201807
